FAERS Safety Report 25689362 (Version 1)
Quarter: 2025Q3

REPORT INFORMATION
  Report Type: Spontaneous
  Country: CN (occurrence: CN)
  Receive Date: 20250818
  Receipt Date: 20250818
  Transmission Date: 20251021
  Serious: Yes (Other)
  Sender: MYLAN
  Company Number: CN-MYLANLABS-2025M1069332

PATIENT
  Age: 64 Year
  Sex: Female
  Weight: 60 kg

DRUGS (1)
  1. LIPITOR [Suspect]
     Active Substance: ATORVASTATIN CALCIUM
     Indication: Lipid management
     Dosage: 20 MILLIGRAM, QD
     Dates: start: 20250716, end: 20250724

REACTIONS (1)
  - Renal impairment [Unknown]

NARRATIVE: CASE EVENT DATE: 20250724
